FAERS Safety Report 16796791 (Version 1)
Quarter: 2019Q3

REPORT INFORMATION
  Report Type: Report from Study
  Country: GB (occurrence: GB)
  Receive Date: 20190911
  Receipt Date: 20190911
  Transmission Date: 20191005
  Serious: Yes (Hospitalization)
  Sender: FDA-Public Use
  Company Number: PHHY2019GB211142

PATIENT
  Sex: Male

DRUGS (1)
  1. COSENTYX [Suspect]
     Active Substance: SECUKINUMAB
     Indication: ANKYLOSING SPONDYLITIS
     Dosage: 150 MG, QW (PRE-FILLED PEN, ON WEEKS 0, 1, 2, 3 AND 4 FOLLOWED BY QMO)
     Route: 058
     Dates: start: 20190621

REACTIONS (1)
  - Fall [Unknown]
